FAERS Safety Report 10128431 (Version 1)
Quarter: 2014Q2

REPORT INFORMATION
  Report Type: Spontaneous
  Country: CN (occurrence: CN)
  Receive Date: 20140428
  Receipt Date: 20140428
  Transmission Date: 20141212
  Serious: Yes (Hospitalization)
  Sender: FDA-Public Use
  Company Number: CN-JNJFOC-20140413335

PATIENT
  Age: 12 Month
  Sex: Male

DRUGS (1)
  1. MOTRIN [Suspect]
     Indication: PYREXIA
     Dosage: ONE CUP
     Route: 048
     Dates: start: 20140416

REACTIONS (3)
  - Shock [Recovered/Resolved]
  - Hyperhidrosis [Recovered/Resolved]
  - Incorrect dose administered [Unknown]
